FAERS Safety Report 11701457 (Version 1)
Quarter: 2015Q4

REPORT INFORMATION
  Report Type: Report from Study
  Country: NL (occurrence: NL)
  Receive Date: 20151105
  Receipt Date: 20151105
  Transmission Date: 20160304
  Serious: Yes (Hospitalization)
  Sender: FDA-Public Use
  Company Number: NL-JNJFOC-20151019752

PATIENT
  Age: 67 Year
  Sex: Female
  Weight: 114 kg

DRUGS (17)
  1. CETOMACROGOL [Concomitant]
     Active Substance: COSMETICS
     Route: 061
  2. ATARAX [Concomitant]
     Active Substance: HYDROXYZINE\HYDROXYZINE HYDROCHLORIDE
     Dosage: FROM 4 TABLETS TO 2 TABLETS
     Route: 065
  3. TOPICORTE [Concomitant]
     Active Substance: DESOXIMETASONE
     Dosage: ONCE A DAY 4+
     Route: 061
  4. LEVOCETIRIZINE [Concomitant]
     Active Substance: LEVOCETIRIZINE
     Route: 065
  5. HYDROXYZINE [Concomitant]
     Active Substance: HYDROXYZINE\HYDROXYZINE HYDROCHLORIDE
     Route: 065
  6. KETOCONAZOLE. [Concomitant]
     Active Substance: KETOCONAZOLE
     Route: 061
  7. STELARA [Suspect]
     Active Substance: USTEKINUMAB
     Indication: PSORIASIS
     Route: 058
     Dates: start: 20150405
  8. PARACETAMOL [Concomitant]
     Active Substance: ACETAMINOPHEN
     Route: 065
  9. SALBUTAMOL [Concomitant]
     Active Substance: ALBUTEROL
     Route: 065
  10. SERETIDE [Concomitant]
     Active Substance: FLUTICASONE FUROATE\SALMETEROL XINAFOATE
     Route: 065
  11. MORFINE [Concomitant]
     Active Substance: MORPHINE
     Route: 065
  12. DERMOVATE [Concomitant]
     Active Substance: CLOBETASOL
     Dosage: ONCE A DAY 4 /3- LAESIONAL BODY, LAESIONAL FACE, ABDOMEN.
     Route: 061
  13. PANTOPRAZOLE [Concomitant]
     Active Substance: PANTOPRAZOLE SODIUM
     Route: 065
  14. TEMAZEPAM. [Concomitant]
     Active Substance: TEMAZEPAM
     Route: 065
  15. PARAFFIN [Concomitant]
     Active Substance: PARAFFIN
     Dosage: 1-2 DAILY
     Route: 061
  16. OXAZEPAM. [Concomitant]
     Active Substance: OXAZEPAM
     Route: 065
  17. DENOREX THERAPEUTIC [Concomitant]
     Active Substance: COAL TAR\MENTHOL
     Dosage: ONCE A DAY, 4 DAYS OF THE WEEK
     Route: 061

REACTIONS (1)
  - Pneumonia [Recovered/Resolved]

NARRATIVE: CASE EVENT DATE: 20150619
